FAERS Safety Report 6727305-3 (Version None)
Quarter: 2010Q2

REPORT INFORMATION
  Report Type: 
  Country: None (occurrence: None)
  Receive Date: 20100517
  Receipt Date: 20100510
  Transmission Date: 20101027
  Serious: Yes (Other)
  Sender: FDA-Public Use
  Company Number: DK-JNJFOC-20100503170

PATIENT
  Sex: Female
  Weight: 26 kg

DRUGS (5)
  1. CONCERTA [Suspect]
     Indication: ATTENTION DEFICIT/HYPERACTIVITY DISORDER
     Route: 065
  2. RITALIN [Suspect]
     Indication: ATTENTION DEFICIT/HYPERACTIVITY DISORDER
     Dosage: IN THE MORNING
     Route: 048
  3. MELATONIN [Concomitant]
     Indication: SLEEP DISORDER
     Dosage: IN THE EVENING
     Route: 065
  4. CENTRAL NERVOUS SYSTEM MEDICATION [Concomitant]
     Route: 065
  5. CENTRAL NERVOUS SYSTEM MEDICATION [Concomitant]
     Route: 065

REACTIONS (2)
  - EPILEPSY [None]
  - LOSS OF CONSCIOUSNESS [None]
